FAERS Safety Report 26009973 (Version 2)
Quarter: 2025Q4

REPORT INFORMATION
  Report Type: Report from Study
  Country: GB (occurrence: GB)
  Receive Date: 20251107
  Receipt Date: 20251112
  Transmission Date: 20260118
  Serious: No
  Sender: SANDOZ
  Company Number: GB-SANDOZ-SDZ2025GB083358

PATIENT
  Age: 12 Year
  Sex: Female

DRUGS (2)
  1. OMNITROPE [Suspect]
     Active Substance: SOMATROPIN
     Indication: Product used for unknown indication
     Dosage: SUREPAL 15 15MG/1.5ML PK5
     Route: 065
  2. OMNITROPE [Suspect]
     Active Substance: SOMATROPIN
     Indication: Product used for unknown indication
     Dosage: SUREPAL 15 15MG/1.5ML PK5
     Route: 065

REACTIONS (2)
  - Injection site pain [Unknown]
  - Injection site bruising [Unknown]
